FAERS Safety Report 22360874 (Version 1)
Quarter: 2023Q2

REPORT INFORMATION
  Report Type: Spontaneous
  Country: US (occurrence: US)
  Receive Date: 20230524
  Receipt Date: 20230524
  Transmission Date: 20230722
  Serious: No
  Sender: FDA-Public Use
  Company Number: US-PFIZER INC-202300194594

PATIENT
  Age: 73 Year
  Sex: Female
  Weight: 58.06 kg

DRUGS (2)
  1. NURTEC ODT [Suspect]
     Active Substance: RIMEGEPANT SULFATE
     Indication: Migraine
     Dosage: 75 MG, 1X/DAY
     Dates: start: 20230428
  2. SUMATRIPTAN [Suspect]
     Active Substance: SUMATRIPTAN
     Indication: Migraine
     Dosage: 100 MG, 1X/DAY

REACTIONS (7)
  - Drug ineffective [Unknown]
  - Migraine [Not Recovered/Not Resolved]
  - Aphasia [Unknown]
  - Illness [Unknown]
  - Dizziness [Unknown]
  - Asthenia [Unknown]
  - Fatigue [Unknown]

NARRATIVE: CASE EVENT DATE: 20230428
